FAERS Safety Report 8712146 (Version 2)
Quarter: 2013Q4

REPORT INFORMATION
  Report Type: Spontaneous
  Country: US (occurrence: US)
  Receive Date: 20120807
  Receipt Date: 20131031
  Transmission Date: 20140711
  Serious: No
  Sender: FDA-Public Use
  Company Number: US-009507513-2012SP036446

PATIENT
  Age: 3 Year
  Sex: Female
  Weight: 15.42 kg

DRUGS (2)
  1. CLARITIN [Suspect]
     Indication: SEASONAL ALLERGY
     Dosage: UNK UNK, UNKNOWN
     Route: 048
     Dates: start: 201203, end: 201205
  2. CLARITIN [Suspect]
     Indication: MEDICAL OBSERVATION

REACTIONS (1)
  - Pain in extremity [Recovered/Resolved]
